FAERS Safety Report 23905133 (Version 4)
Quarter: 2024Q4

REPORT INFORMATION
  Report Type: Spontaneous
  Country: US (occurrence: US)
  Receive Date: 20240527
  Receipt Date: 20241114
  Transmission Date: 20250115
  Serious: No
  Sender: SANOFI AVENTIS
  Company Number: US-SA-SAC20240522000414

PATIENT
  Age: 35 Year
  Sex: Male

DRUGS (2)
  1. ALPROLIX [Suspect]
     Active Substance: EFTRENONACOG ALFA
     Indication: Factor IX deficiency
     Dosage: 4000 UNITS (3600-4400), QW FOR PROPHYLAXIS
     Route: 042
     Dates: start: 202306
  2. ALPROLIX [Suspect]
     Active Substance: EFTRENONACOG ALFA
     Indication: Factor IX deficiency
     Dosage: 4000 UNITS (3600-4400), QW FOR PROPHYLAXIS
     Route: 042
     Dates: start: 202306

REACTIONS (4)
  - Haemorrhage [Not Recovered/Not Resolved]
  - Joint swelling [Not Recovered/Not Resolved]
  - Haemorrhage [Not Recovered/Not Resolved]
  - Joint microhaemorrhage [Unknown]

NARRATIVE: CASE EVENT DATE: 20240501
